FAERS Safety Report 7418759-8 (Version None)
Quarter: 2011Q2

REPORT INFORMATION
  Report Type: 
  Country: None (occurrence: None)
  Receive Date: 20110415
  Receipt Date: 20110412
  Transmission Date: 20111010
  Serious: No
  Sender: FDA-Public Use
  Company Number: US-PFIZER INC-2011027519

PATIENT
  Sex: Female

DRUGS (7)
  1. XANAX [Concomitant]
     Dosage: UNK
  2. LYRICA [Suspect]
     Indication: FIBROMYALGIA
     Dosage: 25 MG, 3X/DAY
     Route: 048
     Dates: end: 20110201
  3. KLONOPIN [Concomitant]
     Dosage: UNK
  4. AMITRIPTYLINE [Concomitant]
     Dosage: 10 MG, UNK
  5. SYNTHROID [Concomitant]
     Dosage: 0.1 MG, 6 DAYS/ WEEK
  6. TEGRETOL [Concomitant]
     Dosage: 200 MG, 2X/DAY
  7. PHENOBARBITAL [Concomitant]
     Dosage: 15 MG, 3X/DAY

REACTIONS (3)
  - VISION BLURRED [None]
  - DIZZINESS [None]
  - PAIN [None]
